FAERS Safety Report 20296317 (Version 1)
Quarter: 2022Q1

REPORT INFORMATION
  Report Type: Spontaneous
  Country: US (occurrence: US)
  Receive Date: 20220105
  Receipt Date: 20220105
  Transmission Date: 20220423
  Serious: Yes (Other)
  Sender: FDA-Public Use
  Company Number: US-UNITED THERAPEUTICS-UNT-2021-027010

PATIENT
  Age: 71 Year
  Sex: Female
  Weight: 72.562 kg

DRUGS (2)
  1. TYVASO [Suspect]
     Active Substance: TREPROSTINIL
     Indication: Pulmonary arterial hypertension
     Dosage: UNK
     Dates: start: 20171010
  2. TYVASO [Suspect]
     Active Substance: TREPROSTINIL
     Dosage: 54-72 ?G, QID

REACTIONS (1)
  - Cataract [Unknown]

NARRATIVE: CASE EVENT DATE: 20211202
